FAERS Safety Report 16310184 (Version 2)
Quarter: 2019Q2

REPORT INFORMATION
  Report Type: Spontaneous
  Country: US (occurrence: US)
  Receive Date: 20190514
  Receipt Date: 20190610
  Transmission Date: 20190711
  Serious: Yes (Hospitalization, Other)
  Sender: FDA-Public Use
  Company Number: US-LEXICON PHARMACEUTICALS, INC-19-1606-00523

PATIENT
  Age: 53 Year
  Sex: Female
  Weight: 60.8 kg

DRUGS (8)
  1. ZOFRAN [Concomitant]
     Active Substance: ONDANSETRON HYDROCHLORIDE
     Route: 048
  2. PANTOPRAZOLE [Concomitant]
     Active Substance: PANTOPRAZOLE
     Route: 048
  3. LANREOTIDE [Concomitant]
     Active Substance: LANREOTIDE
     Route: 058
  4. K-TAB [Concomitant]
     Active Substance: POTASSIUM CHLORIDE
     Route: 048
  5. PANCRELIPASE. [Concomitant]
     Active Substance: PANCRELIPASE
     Route: 048
  6. TELOTRISTAT ETHYL [Suspect]
     Active Substance: TELOTRISTAT ETHYL
     Indication: CARCINOID SYNDROME
     Route: 048
     Dates: start: 201904
  7. CALCIUM CARBONATE. [Concomitant]
     Active Substance: CALCIUM CARBONATE
     Route: 048
  8. POTASSIUM CHLORIDE. [Concomitant]
     Active Substance: POTASSIUM CHLORIDE
     Route: 048

REACTIONS (3)
  - Intestinal obstruction [Not Recovered/Not Resolved]
  - Vomiting [Unknown]
  - Nausea [Unknown]

NARRATIVE: CASE EVENT DATE: 20190504
